FAERS Safety Report 4285215-8 (Version None)
Quarter: 2004Q1

REPORT INFORMATION
  Report Type: 
  Country: None (occurrence: None)
  Receive Date: 20040202
  Receipt Date: 20040118
  Transmission Date: 20041129
  Serious: Yes (Hospitalization)
  Sender: FDA-Public Use
  Company Number: DEU-2004-0000717

PATIENT
  Age: 66 Year
  Sex: Female

DRUGS (2)
  1. MORPHINE SULFATE [Suspect]
     Indication: PAIN
     Dosage: INTRATHECAL
     Route: 037
  2. VALORON N (TILIDINE HYDROCHLORIDE) [Concomitant]

REACTIONS (2)
  - KNEE ARTHROPLASTY [None]
  - KNEE OPERATION [None]
